FAERS Safety Report 22392464 (Version 3)
Quarter: 2023Q2

REPORT INFORMATION
  Report Type: Report from Study
  Country: FR (occurrence: FR)
  Receive Date: 20230601
  Receipt Date: 20230609
  Transmission Date: 20230721
  Serious: Yes (Death, Other)
  Sender: FDA-Public Use
  Company Number: FR-PFIZER INC-PV202300092927

PATIENT

DRUGS (8)
  1. BEVACIZUMAB [Suspect]
     Active Substance: BEVACIZUMAB
     Indication: Non-renal cell carcinoma of kidney
     Dosage: 15 MG/KG (DAY 1)
     Route: 042
  2. BEVACIZUMAB [Suspect]
     Active Substance: BEVACIZUMAB
     Indication: Renal cell carcinoma
  3. CISPLATIN [Suspect]
     Active Substance: CISPLATIN
     Indication: Non-renal cell carcinoma of kidney
     Dosage: 70 MG/M2 (D1) OVER 2 H
  4. CISPLATIN [Suspect]
     Active Substance: CISPLATIN
     Indication: Renal cell carcinoma
  5. GEMCITABINE HYDROCHLORIDE [Suspect]
     Active Substance: GEMCITABINE HYDROCHLORIDE
     Indication: Non-renal cell carcinoma of kidney
     Dosage: 1250 MG/M2 (DAY 1 AND DAY 8) OVER 30 MIN
     Route: 042
  6. GEMCITABINE HYDROCHLORIDE [Suspect]
     Active Substance: GEMCITABINE HYDROCHLORIDE
     Indication: Renal cell carcinoma
  7. PLATINUM [Suspect]
     Active Substance: PLATINUM
     Indication: Non-renal cell carcinoma of kidney
     Dosage: UNK, CYCLIC
  8. PLATINUM [Suspect]
     Active Substance: PLATINUM
     Indication: Renal cell carcinoma

REACTIONS (1)
  - Encephalopathy [Fatal]
